FAERS Safety Report 10362454 (Version 1)
Quarter: 2014Q3

REPORT INFORMATION
  Report Type: Spontaneous
  Country: US (occurrence: US)
  Receive Date: 20140805
  Receipt Date: 20140805
  Transmission Date: 20150326
  Serious: Yes (Hospitalization)
  Sender: FDA-Public Use
  Company Number: PHHY2014US094513

PATIENT
  Age: 3 Year
  Sex: Male

DRUGS (2)
  1. IBUPROFEN. [Suspect]
     Active Substance: IBUPROFEN
  2. PARACETAMOL [Suspect]
     Active Substance: ACETAMINOPHEN

REACTIONS (11)
  - Ear canal stenosis [Unknown]
  - Skin exfoliation [Unknown]
  - Tympanic membrane perforation [Unknown]
  - Conductive deafness [Unknown]
  - Hypoacusis [Unknown]
  - Toxic epidermal necrolysis [Unknown]
  - Ear injury [Unknown]
  - Ear discomfort [Unknown]
  - Cholesteatoma [Unknown]
  - Middle ear effusion [Unknown]
  - Stevens-Johnson syndrome [Unknown]

NARRATIVE: CASE EVENT DATE: 200608
